FAERS Safety Report 7973158-5 (Version None)
Quarter: 2011Q4

REPORT INFORMATION
  Report Type: 
  Country: None (occurrence: None)
  Receive Date: 20111209
  Receipt Date: 20111124
  Transmission Date: 20120403
  Serious: Yes (Hospitalization, Other)
  Sender: FDA-Public Use
  Company Number: 1000024588

PATIENT
  Age: 10 Year
  Sex: Male
  Weight: 35.4 kg

DRUGS (2)
  1. ESCITALOPRAM OXALATE [Suspect]
     Indication: GENERALISED ANXIETY DISORDER
     Dosage: 10 MG (10 MG, 1 IN 1 D), ORAL
     Route: 048
     Dates: start: 20110103, end: 20110330
  2. ATOMOXETINE (ATOMOXETINE) (CAPSULES) (ATOMOXETINE) [Concomitant]

REACTIONS (3)
  - LEUKOPENIA [None]
  - NEUTROPENIA [None]
  - OFF LABEL USE [None]
